FAERS Safety Report 23553979 (Version 3)
Quarter: 2024Q1

REPORT INFORMATION
  Report Type: Report from Study
  Country: CA (occurrence: CA)
  Receive Date: 20240222
  Receipt Date: 20240308
  Transmission Date: 20240410
  Serious: Yes (Other)
  Sender: FDA-Public Use
  Company Number: CA-TAKEDA-2023TUS105725

PATIENT
  Age: 87 Year
  Sex: Female

DRUGS (3)
  1. VEDOLIZUMAB [Suspect]
     Active Substance: VEDOLIZUMAB
     Indication: Crohn^s disease
     Dosage: 300 MILLIGRAM
     Route: 042
     Dates: start: 20231026
  2. VEDOLIZUMAB [Suspect]
     Active Substance: VEDOLIZUMAB
     Dosage: 300 MILLIGRAM
     Route: 042
  3. VEDOLIZUMAB [Suspect]
     Active Substance: VEDOLIZUMAB
     Dosage: 300 MILLIGRAM
     Route: 042
     Dates: start: 20240229

REACTIONS (9)
  - Intestinal obstruction [Unknown]
  - Diarrhoea [Recovering/Resolving]
  - Faecal volume decreased [Unknown]
  - Abdominal pain upper [Recovering/Resolving]
  - Faeces soft [Recovering/Resolving]
  - Therapeutic reaction time decreased [Unknown]
  - Rhinorrhoea [Recovered/Resolved]
  - Dizziness [Unknown]
  - Abdominal pain [Recovering/Resolving]

NARRATIVE: CASE EVENT DATE: 20231026
